FAERS Safety Report 18912001 (Version 1)
Quarter: 2021Q1

REPORT INFORMATION
  Report Type: Spontaneous
  Country: US (occurrence: US)
  Receive Date: 20210219
  Receipt Date: 20210219
  Transmission Date: 20210420
  Serious: No
  Sender: FDA-Public Use
  Company Number: US-GLAXOSMITHKLINE-USCH2021GSK006790

PATIENT
  Sex: Female

DRUGS (3)
  1. IBUPROFEN. [Suspect]
     Active Substance: IBUPROFEN
     Indication: HYPOAESTHESIA
  2. IBUPROFEN. [Suspect]
     Active Substance: IBUPROFEN
     Indication: HYPOAESTHESIA EYE
     Dosage: 800 MG
  3. IBUPROFEN. [Suspect]
     Active Substance: IBUPROFEN
     Indication: HYPOAESTHESIA

REACTIONS (1)
  - Product use issue [Unknown]
